FAERS Safety Report 25675388 (Version 1)
Quarter: 2025Q3

REPORT INFORMATION
  Report Type: Report from Study
  Country: JP (occurrence: JP)
  Receive Date: 20250813
  Receipt Date: 20250813
  Transmission Date: 20251020
  Serious: Yes (Other)
  Sender: EISAI
  Company Number: JP-Eisai-202505707_LEQ_P_1

PATIENT
  Age: 84 Year
  Sex: Female
  Weight: 48 kg

DRUGS (3)
  1. LEQEMBI [Suspect]
     Active Substance: LECANEMAB-IRMB
     Indication: Cognitive disorder
     Dates: start: 20241204, end: 20250205
  2. LEQEMBI [Suspect]
     Active Substance: LECANEMAB-IRMB
     Dates: start: 20250305, end: 20250611
  3. ALLYDONE [Concomitant]
     Indication: Cognitive disorder

REACTIONS (1)
  - Cerebral haemorrhage [Unknown]

NARRATIVE: CASE EVENT DATE: 20250528
